FAERS Safety Report 5367158-1 (Version None)
Quarter: 2007Q2

REPORT INFORMATION
  Report Type: 
  Country: None (occurrence: None)
  Receive Date: 20070622
  Receipt Date: 20070213
  Transmission Date: 20071010
  Serious: Yes (Hospitalization, Other)
  Sender: FDA-Public Use
  Company Number: US-BRISTOL-MYERS SQUIBB COMPANY-13686142

PATIENT
  Sex: Male

DRUGS (14)
  1. SINEMET [Suspect]
     Indication: TREMOR
     Route: 048
     Dates: start: 20050125, end: 20050128
  2. COLACE [Concomitant]
  3. DURAGESIC-100 [Concomitant]
  4. LISINOPRIL [Concomitant]
  5. NEURONTIN [Concomitant]
  6. PRILOSEC [Concomitant]
  7. PROZAC [Concomitant]
  8. REMERON [Concomitant]
  9. ZOLADEX [Concomitant]
  10. ZYPREXA [Concomitant]
  11. ALBUTEROL [Concomitant]
  12. GLYBURIDE [Concomitant]
  13. LACTASE [Concomitant]
  14. NITROGLYCERIN [Concomitant]

REACTIONS (1)
  - NIGHTMARE [None]
